FAERS Safety Report 4950468-7 (Version None)
Quarter: 2006Q1

REPORT INFORMATION
  Report Type: 
  Country: None (occurrence: None)
  Receive Date: 20060315
  Receipt Date: 20060306
  Transmission Date: 20060701
  Serious: Yes (Life-Threatening, Other)
  Sender: FDA-Public Use
  Company Number: DEWYE450006MAR06

PATIENT
  Age: 78 Year
  Sex: Female

DRUGS (3)
  1. VENLAFAXINE HCL [Suspect]
     Indication: DEPRESSION
     Dosage: 225 MG PER DAY ORAL
     Route: 048
     Dates: start: 20001122
  2. VENLAFAXINE HCL [Suspect]
     Indication: DYSTHYMIC DISORDER
     Dosage: 225 MG PER DAY ORAL
     Route: 048
     Dates: start: 20001122
  3. VENLAFAXINE HCL [Suspect]
     Indication: PANIC DISORDER
     Dosage: 225 MG PER DAY ORAL
     Route: 048
     Dates: start: 20001122

REACTIONS (1)
  - CARDIAC FAILURE [None]
